FAERS Safety Report 5522664-1 (Version None)
Quarter: 2007Q4

REPORT INFORMATION
  Report Type: 
  Country: None (occurrence: None)
  Receive Date: 20071120
  Receipt Date: 20071108
  Transmission Date: 20080405
  Serious: Yes (Other)
  Sender: FDA-Public Use
  Company Number: US-SHR-US-2007-006876

PATIENT
  Age: 52 Year
  Sex: Female

DRUGS (1)
  1. BETASERON [Suspect]
     Dosage: 8 MIU, EVERY 2D
     Route: 058
     Dates: start: 20061120

REACTIONS (5)
  - ARTHRALGIA [None]
  - HEADACHE [None]
  - PAIN [None]
  - PAIN IN EXTREMITY [None]
  - WEIGHT INCREASED [None]
